FAERS Safety Report 14204589 (Version 1)
Quarter: 2017Q4

REPORT INFORMATION
  Report Type: Spontaneous
  Country: US (occurrence: None)
  Receive Date: 20171114
  Receipt Date: 20171114
  Transmission Date: 20180321
  Serious: Yes (Hospitalization)
  Sender: FDA-Public Use
  Company Number: None

PATIENT
  Age: 4 Year
  Sex: Male

DRUGS (1)
  1. SANDOSTATIN [Suspect]
     Active Substance: OCTREOTIDE ACETATE
     Indication: GASTROINTESTINAL INFLAMMATION
     Dosage: 20 MG EVERY 4 WEEKS INTRAMUSCULARLY
     Route: 030
     Dates: start: 20170811, end: 20170919

REACTIONS (2)
  - Palpitations [None]
  - Blood potassium decreased [None]

NARRATIVE: CASE EVENT DATE: 20170919
